FAERS Safety Report 7491581-2 (Version None)
Quarter: 2011Q2

REPORT INFORMATION
  Report Type: 
  Country: None (occurrence: None)
  Receive Date: 20110519
  Receipt Date: 20110511
  Transmission Date: 20111010
  Serious: Yes (Other)
  Sender: FDA-Public Use
  Company Number: US-JNJFOC-20110505689

PATIENT
  Age: 78 Year
  Sex: Female
  Weight: 86.18 kg

DRUGS (8)
  1. PROTONIX [Concomitant]
     Indication: GASTRIC DISORDER
     Route: 048
  2. ACETAMINOPHEN [Suspect]
     Route: 048
  3. COREG [Concomitant]
     Indication: HYPERTENSION
     Dosage: 3-4 YEARS
     Route: 048
     Dates: start: 20080101
  4. PEPCID [Suspect]
     Indication: GASTRIC DISORDER
  5. PREVACID [Concomitant]
     Indication: GASTRIC DISORDER
     Dosage: 5-6 YEARS
     Route: 048
     Dates: start: 20060101
  6. ACETAMINOPHEN [Suspect]
     Indication: BACK PAIN
     Dosage: 1.5-2 CAPLETS AS NEEDED
     Route: 048
     Dates: start: 20070101
  7. PEPCID [Suspect]
  8. INDERAL [Concomitant]
     Indication: CARDIAC DISORDER
     Route: 048

REACTIONS (2)
  - WRONG TECHNIQUE IN DRUG USAGE PROCESS [None]
  - GASTRIC HAEMORRHAGE [None]
